FAERS Safety Report 7318549-0 (Version None)
Quarter: 2011Q1

REPORT INFORMATION
  Report Type: 
  Country: None (occurrence: None)
  Receive Date: 20110217
  Receipt Date: 20110217
  Transmission Date: 20110831
  Serious: Yes (Hospitalization, Disabling)
  Sender: FDA-Public Use
  Company Number: None

PATIENT
  Age: 34 Year
  Sex: Male
  Weight: 99.7913 kg

DRUGS (2)
  1. DVALPROEX 24 HR ER SA TAB 500MG NON - FROM VA HOSPITAL [Suspect]
     Indication: MIGRAINE
     Dosage: 500MG 4 X DAY PO
     Route: 048
     Dates: start: 20110128, end: 20110209
  2. DVALPROEX 24 HR ER SA TAB 500MG NON - FROM VA HOSPITAL [Suspect]
     Indication: CONVULSION
     Dosage: 500MG 4 X DAY PO
     Route: 048
     Dates: start: 20110128, end: 20110209

REACTIONS (11)
  - MYALGIA [None]
  - SKIN EXFOLIATION [None]
  - CHEST PAIN [None]
  - RASH PRURITIC [None]
  - MOOD SWINGS [None]
  - AGGRESSION [None]
  - AMNESIA [None]
  - RASH [None]
  - LUNG INFECTION [None]
  - MUSCLE FATIGUE [None]
  - RASH ERYTHEMATOUS [None]
